FAERS Safety Report 5954141-8 (Version None)
Quarter: 2008Q4

REPORT INFORMATION
  Report Type: 
  Country: None (occurrence: None)
  Receive Date: 20081117
  Receipt Date: 20081110
  Transmission Date: 20090506
  Serious: Yes (Other)
  Sender: FDA-Public Use
  Company Number: DE-BAYER-200830341GPV

PATIENT

DRUGS (1)
  1. BETAFERON [Suspect]
     Indication: DRUG USE FOR UNKNOWN INDICATION

REACTIONS (2)
  - CHILLS [None]
  - MUSCLE SPASTICITY [None]
